FAERS Safety Report 10488686 (Version 1)
Quarter: 2014Q4

REPORT INFORMATION
  Report Type: Spontaneous
  Country: US (occurrence: None)
  Receive Date: 20141001
  Receipt Date: 20141001
  Transmission Date: 20150528
  Serious: Yes (Other)
  Sender: FDA-Public Use
  Company Number: None

PATIENT
  Age: 31 Year
  Sex: Female
  Weight: 54.43 kg

DRUGS (3)
  1. RIZATRIPTAN [Concomitant]
     Active Substance: RIZATRIPTAN
  2. FLUOXETINE [Concomitant]
     Active Substance: FLUOXETINE\FLUOXETINE HYDROCHLORIDE
  3. MONO-LINYAH [Suspect]
     Active Substance: ETHINYL ESTRADIOL\NORGESTIMATE
     Indication: CONTRACEPTION
     Dosage: 1 TABLET QD ORAL
     Route: 048
     Dates: start: 20140705, end: 20140905

REACTIONS (3)
  - Pregnancy on oral contraceptive [None]
  - Maternal exposure during pregnancy [None]
  - Product substitution issue [None]

NARRATIVE: CASE EVENT DATE: 20140319
